FAERS Safety Report 5455389-1 (Version None)
Quarter: 2007Q3

REPORT INFORMATION
  Report Type: 
  Country: None (occurrence: None)
  Receive Date: 20070918
  Receipt Date: 20070330
  Transmission Date: 20080115
  Serious: Yes (Other)
  Sender: FDA-Public Use
  Company Number: US-ASTRAZENECA-2006UW21000

PATIENT
  Age: 33 Year
  Sex: Male
  Weight: 91.8 kg

DRUGS (5)
  1. SEROQUEL [Suspect]
     Indication: HALLUCINATION, AUDITORY
     Route: 048
     Dates: end: 20040101
  2. GEODON [Concomitant]
     Dates: start: 20050101
  3. HONDIN [Concomitant]
  4. WELLBUTRIN [Concomitant]
  5. LISINOPRIL [Concomitant]

REACTIONS (5)
  - BIPOLAR DISORDER [None]
  - DEPRESSION [None]
  - MENTAL DISORDER [None]
  - PANCREATITIS [None]
  - SCHIZOPHRENIA [None]
